FAERS Safety Report 9725355 (Version 1)
Quarter: 2013Q4

REPORT INFORMATION
  Report Type: Spontaneous
  Country: CN (occurrence: CN)
  Receive Date: 20131203
  Receipt Date: 20131203
  Transmission Date: 20140711
  Serious: Yes (Hospitalization)
  Sender: FDA-Public Use
  Company Number: CN-BAYER-2013-141542

PATIENT
  Sex: Male

DRUGS (1)
  1. GLUCOBAY [Suspect]
     Dosage: 1 DF, BID
     Route: 048

REACTIONS (6)
  - Burning sensation [Recovering/Resolving]
  - Toxicity to various agents [None]
  - Ecchymosis [Not Recovered/Not Resolved]
  - Oral discomfort [Recovering/Resolving]
  - Lip blister [Recovering/Resolving]
  - Blister [Recovering/Resolving]
